FAERS Safety Report 8315676 (Version 9)
Quarter: 2013Q3

REPORT INFORMATION
  Report Type: Spontaneous
  Country: US (occurrence: US)
  Receive Date: 20111229
  Receipt Date: 20130820
  Transmission Date: 20140515
  Serious: Yes (Hospitalization, Other)
  Sender: FDA-Public Use
  Company Number: US-ROCHE-776830

PATIENT
  Age: 17 Year
  Sex: Female
  Weight: 54.48 kg

DRUGS (4)
  1. ACCUTANE [Suspect]
     Indication: ACNE
     Route: 065
  2. ACCUTANE [Suspect]
     Route: 048
  3. ACCUTANE [Suspect]
     Route: 048
  4. ACCUTANE [Suspect]
     Route: 048
     Dates: start: 19990210, end: 199907

REACTIONS (15)
  - Crohn^s disease [Unknown]
  - Depression [Unknown]
  - Clostridium difficile colitis [Unknown]
  - Inflammatory bowel disease [Unknown]
  - Irritable bowel syndrome [Unknown]
  - Thoracic outlet syndrome [Unknown]
  - Spinal fusion surgery [Unknown]
  - Arthralgia [Unknown]
  - Fatigue [Unknown]
  - Alopecia [Unknown]
  - Anal fissure [Unknown]
  - Intervertebral disc protrusion [Unknown]
  - Aphthous stomatitis [Unknown]
  - Bone disorder [Unknown]
  - Epistaxis [Unknown]
